FAERS Safety Report 13703592 (Version 1)
Quarter: 2017Q2

REPORT INFORMATION
  Report Type: Spontaneous
  Country: US (occurrence: US)
  Receive Date: 20170629
  Receipt Date: 20170629
  Transmission Date: 20170830
  Serious: No
  Sender: FDA-Public Use
  Company Number: US-AVEDRO-AVE-2017-0087-AE

PATIENT
  Age: 9 Year
  Sex: Male

DRUGS (7)
  1. PHOTREXA [Suspect]
     Active Substance: RIBOFLAVIN 5^-PHOSPHATE SODIUM
     Dosage: EVERY FEW MINUTES FOR 30 MINUTE COMBINATION OF PHOTREXA VISCOUS AND PHOTREXA
     Route: 047
     Dates: start: 20170320, end: 20170320
  2. PHOTREXA VISCOUS [Suspect]
     Active Substance: RIBOFLAVIN 5^-PHOSPHATE SODIUM
     Indication: PRODUCT USED FOR UNKNOWN INDICATION
     Dosage: APPROXIMATELY 5 - 10 DROPS TOTAL
     Route: 047
     Dates: start: 20170320, end: 20170320
  3. PHOTREXA VISCOUS [Suspect]
     Active Substance: RIBOFLAVIN 5^-PHOSPHATE SODIUM
     Dosage: 30 MINUTE COMBINATION OF PHOTREXA VISCOUS AND PHOTREXA, APPROXIMATELY 10 DROPS
     Route: 047
     Dates: start: 20170320, end: 20170320
  4. PHOTREXA [Suspect]
     Active Substance: RIBOFLAVIN 5^-PHOSPHATE SODIUM
     Indication: PRODUCT USED FOR UNKNOWN INDICATION
     Dosage: APPROXIMATELY EVERY 10 SECONDS FOR FIRST 6 MINUTES AND EVERY 30 SECONDS FOR ADDITIONAL 4 MINUTES
     Route: 047
     Dates: start: 20170320, end: 20170320
  5. PHOTREXA VISCOUS [Suspect]
     Active Substance: RIBOFLAVIN 5^-PHOSPHATE SODIUM
     Dosage: 30 MINUTE COMBINATION OF PHOTREXA VISCOUS AND PHOTREXA, APPROXIMATELY 10 DROPS
     Route: 047
     Dates: start: 20170320, end: 20170320
  6. KXL SYSTEM [Suspect]
     Active Substance: DEVICE
     Indication: PRODUCT USED FOR UNKNOWN INDICATION
     Route: 047
     Dates: start: 20170320, end: 20170320
  7. PHOTREXA [Suspect]
     Active Substance: RIBOFLAVIN 5^-PHOSPHATE SODIUM
     Dosage: EVERY FEW MINUTES FOR 30 MINUTE COMBINATION OF PHOTREXA VISCOUS AND PHOTREXA
     Route: 047
     Dates: start: 20170320, end: 20170320

REACTIONS (4)
  - Incorrect drug administration duration [Unknown]
  - Therapy cessation [Unknown]
  - Corneal opacity [Unknown]
  - Corneal epithelium defect [Recovered/Resolved]

NARRATIVE: CASE EVENT DATE: 20170320
